FAERS Safety Report 4608396-2 (Version None)
Quarter: 2005Q1

REPORT INFORMATION
  Report Type: 
  Country: None (occurrence: None)
  Receive Date: 20050315
  Receipt Date: 20050303
  Transmission Date: 20050727
  Serious: Yes (Other)
  Sender: FDA-Public Use
  Company Number: US-JNJFOC-20040906198

PATIENT
  Age: 46 Year
  Sex: Female
  Weight: 83 kg

DRUGS (4)
  1. REMICADE [Suspect]
     Indication: REITER'S SYNDROME
     Route: 042
  2. REMICADE [Suspect]
     Indication: RHEUMATOID ARTHRITIS
     Route: 042
  3. METHOTREXATE [Concomitant]
  4. PREDNISONE [Concomitant]

REACTIONS (4)
  - ANTINEUTROPHIL CYTOPLASMIC ANTIBODY POSITIVE [None]
  - INFUSION RELATED REACTION [None]
  - LEUKOCYTOCLASTIC VASCULITIS [None]
  - RASH ERYTHEMATOUS [None]
